FAERS Safety Report 9646579 (Version 1)
Quarter: 2013Q4

REPORT INFORMATION
  Report Type: Spontaneous
  Country: DE (occurrence: DE)
  Receive Date: 20131025
  Receipt Date: 20131025
  Transmission Date: 20140711
  Serious: Yes (Hospitalization)
  Sender: FDA-Public Use
  Company Number: DE-009507513-1310DEU010309

PATIENT
  Age: 76 Year
  Sex: Male

DRUGS (7)
  1. JANUMET [Suspect]
     Indication: TYPE 2 DIABETES MELLITUS
     Dosage: 50MG/1000MG, BID
     Route: 048
     Dates: start: 201307
  2. ASPIRIN [Concomitant]
  3. BELOC MITE [Concomitant]
  4. RAMIPRIL [Concomitant]
  5. VENLAFAXINE HYDROCHLORIDE [Concomitant]
  6. PANTOPRAZOLE [Concomitant]
  7. L-THYROXIN [Concomitant]

REACTIONS (2)
  - Constipation [Recovering/Resolving]
  - Enteritis [Recovering/Resolving]
